FAERS Safety Report 9425042 (Version 2)
Quarter: 2013Q3

REPORT INFORMATION
  Report Type: Spontaneous
  Country: JP (occurrence: JP)
  Receive Date: 20130729
  Receipt Date: 20130819
  Transmission Date: 20140515
  Serious: Yes (Hospitalization)
  Sender: FDA-Public Use
  Company Number: JP-B.I. PHARMACEUTICALS,INC./RIDGEFIELD-2013-BI-22120NB

PATIENT
  Age: 75 Year
  Sex: Female

DRUGS (7)
  1. MIRAPEX LA [Suspect]
     Indication: PARKINSON^S DISEASE
     Dosage: 0.375 MG
     Route: 065
  2. MIRAPEX LA [Suspect]
     Dosage: 0.75 MG
     Route: 065
  3. THYRADIN S / LEVOTHYROXINE SODIUM HYDRATE [Concomitant]
     Dosage: DAILY DOSE: 1DF
     Route: 065
  4. AMLODIPINE / AMLODIPINE BESILATE [Concomitant]
     Dosage: DAILY DOSE: 1DF
     Route: 065
  5. WARKMIN / ALFACALCIDOL [Concomitant]
     Route: 065
  6. DIOVAN / VALSARTAN [Concomitant]
     Dosage: DAILY DOSE: 1DF
     Route: 065
  7. DOPACOL / LEVODOPA_CARBIDOPA HYDRATE [Concomitant]
     Dosage: DAILY DOSE: 3DF
     Route: 065

REACTIONS (1)
  - Leukaemia [Unknown]
